FAERS Safety Report 13504101 (Version 2)
Quarter: 2017Q2

REPORT INFORMATION
  Report Type: Report from Study
  Country: US (occurrence: US)
  Receive Date: 20170502
  Receipt Date: 20170518
  Transmission Date: 20170830
  Serious: Yes (Other)
  Sender: FDA-Public Use
  Company Number: US-BRISTOL-MYERS SQUIBB COMPANY-BMS-2017-035932

PATIENT
  Sex: Female
  Weight: 63.49 kg

DRUGS (1)
  1. APIXABAN [Suspect]
     Active Substance: APIXABAN
     Indication: CEREBROVASCULAR ACCIDENT PROPHYLAXIS
     Dosage: 5 MG, BID
     Route: 048

REACTIONS (11)
  - Depression [Unknown]
  - Insomnia [Unknown]
  - Pruritus [Unknown]
  - Tongue discomfort [Unknown]
  - Tongue pruritus [Unknown]
  - Irritable bowel syndrome [Unknown]
  - Arthritis [Unknown]
  - Body height decreased [Unknown]
  - Breast cancer [Unknown]
  - Vision blurred [Unknown]
  - Anxiety [Unknown]
